FAERS Safety Report 7501764-0 (Version None)
Quarter: 2011Q2

REPORT INFORMATION
  Report Type: 
  Country: None (occurrence: None)
  Receive Date: 20110523
  Receipt Date: 20110523
  Transmission Date: 20111010
  Serious: Yes (Hospitalization)
  Sender: FDA-Public Use
  Company Number: None

PATIENT
  Age: 86 Year
  Sex: Female
  Weight: 56 kg

DRUGS (11)
  1. ZOLOFT [Suspect]
     Indication: DEPRESSION
     Dosage: 50MG DAILY PO  RECENT
     Route: 048
  2. TOPROL-XL [Concomitant]
  3. OMEPRAZOLE [Concomitant]
  4. ATARAX [Concomitant]
  5. VIT D [Concomitant]
  6. PREDNISONE [Concomitant]
  7. ZOLPIDEM [Concomitant]
  8. AMLODIPINE BESYLATE AND BENAZEPRIL HCL [Concomitant]
  9. CENTRUM [Concomitant]
  10. VYTORIN [Concomitant]
  11. ASPIRIN [Concomitant]

REACTIONS (2)
  - INAPPROPRIATE ANTIDIURETIC HORMONE SECRETION [None]
  - DRUG HYPERSENSITIVITY [None]
